FAERS Safety Report 6475693-8 (Version None)
Quarter: 2009Q4

REPORT INFORMATION
  Report Type: 
  Country: None (occurrence: None)
  Receive Date: 20091204
  Receipt Date: 20091130
  Transmission Date: 20100525
  Serious: Yes (Hospitalization, Other)
  Sender: FDA-Public Use
  Company Number: US-TEVA-216846USA

PATIENT
  Age: 77 Year
  Sex: Male

DRUGS (1)
  1. NITROFURANTOIN CAPSULES USP, 100MG (MACROCRYSTALLINE) [Suspect]
     Indication: PROPHYLAXIS URINARY TRACT INFECTION
     Dosage: 100 MG DAILY
     Dates: start: 20080901

REACTIONS (1)
  - SYSTEMIC INFLAMMATORY RESPONSE SYNDROME [None]
